FAERS Safety Report 9192856 (Version 1)
Quarter: 2013Q1

REPORT INFORMATION
  Report Type: Report from Study
  Country: US (occurrence: US)
  Receive Date: 20130327
  Receipt Date: 20130327
  Transmission Date: 20140127
  Serious: Yes (Hospitalization)
  Sender: FDA-Public Use
  Company Number: US-VERTEX PHARMACEUTICALS INC.-2013-004098

PATIENT
  Age: 59 Year
  Sex: Male
  Weight: 100 kg

DRUGS (4)
  1. PEGASYS [Suspect]
     Indication: HEPATITIS C
     Dosage: 180 ?G, QW
     Route: 058
     Dates: start: 20130117
  2. RIBASPHERE [Suspect]
     Indication: HEPATITIS C
     Dosage: 1200 MG, QD
     Route: 048
     Dates: start: 20130117
  3. RIBASPHERE [Suspect]
     Dosage: 600 MG, QD
     Route: 048
  4. VX-950 (TELAPREVIR) [Suspect]
     Indication: HEPATITIS C
     Dosage: 750 MG, TID
     Route: 048
     Dates: start: 20130117

REACTIONS (2)
  - Heart rate irregular [Unknown]
  - Blood glucose increased [Recovered/Resolved]
